FAERS Safety Report 24222827 (Version 2)
Quarter: 2024Q3

REPORT INFORMATION
  Report Type: Report from Study
  Country: FR (occurrence: FR)
  Receive Date: 20240819
  Receipt Date: 20240829
  Transmission Date: 20241017
  Serious: Yes (Hospitalization)
  Sender: SERVIER
  Company Number: FR-SERVIER-S24009944

PATIENT

DRUGS (8)
  1. PEGASPARGASE [Suspect]
     Active Substance: PEGASPARGASE
     Indication: Acute lymphocytic leukaemia
     Dosage: 625 IU, ON D4
     Route: 042
     Dates: start: 20210521, end: 20210521
  2. VINCRISTINE [Suspect]
     Active Substance: VINCRISTINE
     Indication: Acute lymphocytic leukaemia
     Dosage: 0.7 MG, ON D1, D8
     Route: 042
     Dates: start: 20210518, end: 20210525
  3. DOXORUBICIN [Suspect]
     Active Substance: DOXORUBICIN
     Indication: Acute lymphocytic leukaemia
     Dosage: 13.2 MG, ON D1, D8
     Route: 042
     Dates: start: 20210518, end: 20210601
  4. METHOTREXATE [Suspect]
     Active Substance: METHOTREXATE
     Indication: Acute lymphocytic leukaemia
     Dosage: 8 MG, ON D4, D31
     Route: 037
     Dates: start: 20210522, end: 20210619
  5. CYCLOPHOSPHAMIDE [Suspect]
     Active Substance: CYCLOPHOSPHAMIDE
     Indication: Acute lymphocytic leukaemia
     Dosage: 530 MG, D1 TO D15
     Route: 048
     Dates: start: 20210518, end: 20210601
  6. THIOGUANINE [Suspect]
     Active Substance: THIOGUANINE
     Indication: Acute lymphocytic leukaemia
     Dosage: 30 MG, ON D29-D42
     Route: 048
     Dates: start: 20210617, end: 20210702
  7. CYTARABINE [Suspect]
     Active Substance: CYTARABINE
     Indication: Acute lymphocytic leukaemia
     Dosage: 38 MG, ON D31-D34, D38-D41
     Route: 042
     Dates: start: 20210619, end: 20210702
  8. DEXAMETHASONE [Suspect]
     Active Substance: DEXAMETHASONE
     Indication: Acute lymphocytic leukaemia
     Dosage: 5 MG, D1 TO D15
     Route: 048
     Dates: start: 20210518, end: 20210601

REACTIONS (2)
  - Febrile bone marrow aplasia [Recovered/Resolved]
  - Clostridium test positive [Recovered/Resolved]

NARRATIVE: CASE EVENT DATE: 20210602
